FAERS Safety Report 24082080 (Version 1)
Quarter: 2024Q3

REPORT INFORMATION
  Report Type: Spontaneous
  Country: BE (occurrence: BE)
  Receive Date: 20240712
  Receipt Date: 20240712
  Transmission Date: 20241017
  Serious: Yes (Other)
  Sender: RANBAXY
  Company Number: BE-SUN PHARMACEUTICAL INDUSTRIES LTD-2024R1-455898

PATIENT
  Sex: Female

DRUGS (1)
  1. CARBOPLATIN [Suspect]
     Active Substance: CARBOPLATIN
     Indication: Breast cancer
     Route: 065

REACTIONS (2)
  - Exposure during pregnancy [Unknown]
  - Gene mutation [Unknown]
